FAERS Safety Report 7432641-1 (Version None)
Quarter: 2011Q2

REPORT INFORMATION
  Report Type: 
  Country: None (occurrence: None)
  Receive Date: 20110422
  Receipt Date: 20110419
  Transmission Date: 20111010
  Serious: Yes (Death)
  Sender: FDA-Public Use
  Company Number: BR-ABBOTT-11P-020-0720438-00

PATIENT
  Weight: 65 kg

DRUGS (4)
  1. ASPIRIN [Concomitant]
     Indication: CARDIAC DISORDER
     Dosage: INFANTILE
     Dates: end: 20110314
  2. HUMIRA [Suspect]
     Indication: RHEUMATOID ARTHRITIS
     Route: 058
     Dates: start: 20101001, end: 20101206
  3. SUSTRATE [Concomitant]
     Indication: CARDIAC DISORDER
     Dates: start: 20090101, end: 20110314
  4. FUROSEMIDE [Concomitant]
     Indication: HYPERTENSION
     Route: 048
     Dates: end: 20110314

REACTIONS (8)
  - PAIN [None]
  - DECREASED APPETITE [None]
  - MYOCARDIAL INFARCTION [None]
  - FATIGUE [None]
  - DYSPNOEA [None]
  - LOSS OF CONSCIOUSNESS [None]
  - RESPIRATORY FAILURE [None]
  - CHEST PAIN [None]
